FAERS Safety Report 12884706 (Version 3)
Quarter: 2017Q1

REPORT INFORMATION
  Report Type: Spontaneous
  Country: US (occurrence: US)
  Receive Date: 20161026
  Receipt Date: 20170330
  Transmission Date: 20170428
  Serious: Yes (Hospitalization)
  Sender: FDA-Public Use
  Company Number: US-ACTELION-A-NJ2016-144238

PATIENT
  Age: 66 Year
  Sex: Female
  Weight: 55.33 kg

DRUGS (5)
  1. UPTRAVI [Suspect]
     Active Substance: SELEXIPAG
     Indication: PULMONARY ARTERIAL HYPERTENSION
     Dosage: 1800 MCG, BID
     Route: 048
     Dates: start: 20160401, end: 20170320
  2. UPTRAVI [Suspect]
     Active Substance: SELEXIPAG
     Dosage: 2600 MCG, BID
     Route: 048
  3. OPSUMIT [Suspect]
     Active Substance: MACITENTAN
     Indication: PULMONARY ARTERIAL HYPERTENSION
     Dosage: 10 MG, QD
     Route: 048
     Dates: start: 20160203
  4. VELETRI [Concomitant]
     Active Substance: EPOPROSTENOL
     Indication: PULMONARY ARTERIAL HYPERTENSION
  5. COUMADIN [Concomitant]
     Active Substance: WARFARIN SODIUM

REACTIONS (4)
  - Chest injury [Unknown]
  - Fall [Unknown]
  - Cardiac failure [Unknown]
  - Syncope [Unknown]

NARRATIVE: CASE EVENT DATE: 20161011
